FAERS Safety Report 16116540 (Version 3)
Quarter: 2019Q2

REPORT INFORMATION
  Report Type: Report from Study
  Country: DE (occurrence: DE)
  Receive Date: 20190326
  Receipt Date: 20190410
  Transmission Date: 20190711
  Serious: Yes (Hospitalization)
  Sender: FDA-Public Use
  Company Number: DE-ROCHE-2288682

PATIENT
  Age: 83 Year
  Sex: Female
  Weight: 45 kg

DRUGS (9)
  1. ATEZOLIZUMAB. [Suspect]
     Active Substance: ATEZOLIZUMAB
     Indication: NON-SMALL CELL LUNG CANCER
     Dosage: ON DAY 1 OF EACH 21-DAY CYCLE?DOSE OF MOST RECENT DOSE OF ATEZOLIZUMAB (1200 MG) ADMINISTERED PRIOR
     Route: 042
     Dates: start: 20190221
  2. METFORMIN [Concomitant]
     Active Substance: METFORMIN HYDROCHLORIDE
     Route: 048
     Dates: start: 20190206
  3. HUMAN INSULIN [Concomitant]
     Active Substance: INSULIN HUMAN
     Dosage: 50/50
     Route: 058
     Dates: start: 20190206
  4. CLEXANE [Concomitant]
     Active Substance: ENOXAPARIN SODIUM
     Indication: PROPHYLAXIS
     Route: 058
     Dates: start: 20190220, end: 20190222
  5. SIMVASTATIN. [Concomitant]
     Active Substance: SIMVASTATIN
     Route: 048
  6. SPIOLTO RESPIMAT [Concomitant]
     Active Substance: OLODATEROL HYDROCHLORIDE\TIOTROPIUM BROMIDE MONOHYDRATE
     Route: 055
  7. BALDRIAN [Concomitant]
     Active Substance: VALERIAN
     Indication: SLEEP DISORDER
     Route: 048
     Dates: start: 20190220, end: 20190221
  8. PANTOPRAZOL [Concomitant]
     Active Substance: PANTOPRAZOLE SODIUM
     Indication: GASTROOESOPHAGEAL REFLUX DISEASE
     Route: 048
     Dates: start: 20190314
  9. PANGROL [Concomitant]
     Active Substance: PANCRELIPASE
     Route: 048

REACTIONS (1)
  - General physical health deterioration [Not Recovered/Not Resolved]

NARRATIVE: CASE EVENT DATE: 20190316
